FAERS Safety Report 9106067 (Version 1)
Quarter: 2013Q1

REPORT INFORMATION
  Report Type: Spontaneous
  Country: FR (occurrence: FR)
  Receive Date: 20130220
  Receipt Date: 20130220
  Transmission Date: 20140127
  Serious: Yes (Hospitalization)
  Sender: FDA-Public Use
  Company Number: FR-PFIZER INC-2013060884

PATIENT
  Age: 66 Year
  Sex: Female

DRUGS (6)
  1. ZYVOXID [Suspect]
     Indication: PNEUMONIA
     Dosage: 1 DF, 2X/DAY
     Route: 042
     Dates: start: 20130112, end: 20130121
  2. TAZOCILLINE [Suspect]
     Indication: PNEUMONIA
     Dosage: 1 DF, 3X/DAY
     Route: 042
     Dates: start: 20130112, end: 20130121
  3. PROPOFOL [Suspect]
     Dosage: UNK
     Route: 042
     Dates: start: 20130112, end: 20130114
  4. DILANTIN [Suspect]
     Indication: STATUS EPILEPTICUS
     Dosage: UNK
     Route: 042
     Dates: start: 20130112, end: 20130112
  5. GARDENAL ^AVENTIS^ [Suspect]
     Indication: STATUS EPILEPTICUS
     Dosage: UNK
     Route: 042
     Dates: start: 20130112, end: 20130116
  6. KEPPRA [Concomitant]
     Dosage: UNK
     Route: 042
     Dates: start: 20130112

REACTIONS (2)
  - Pancytopenia [Recovering/Resolving]
  - Agranulocytosis [Recovering/Resolving]
